FAERS Safety Report 4431032-5 (Version None)
Quarter: 2004Q3

REPORT INFORMATION
  Report Type: 
  Country: None (occurrence: None)
  Receive Date: 20040824
  Receipt Date: 20040302
  Transmission Date: 20050211
  Serious: No
  Sender: FDA-Public Use
  Company Number: US-BRISTOL-MYERS SQUIBB COMPANY-12523114

PATIENT
  Age: 79 Year
  Sex: Female
  Weight: 59 kg

DRUGS (8)
  1. MEGACE [Suspect]
     Indication: FAILURE TO THRIVE
  2. METFORMIN HCL [Concomitant]
  3. FLAGYL [Concomitant]
  4. COREG [Concomitant]
  5. ECOTRIN [Concomitant]
  6. COUMADIN [Concomitant]
  7. LASIX [Concomitant]
  8. ZOLOFT [Concomitant]

REACTIONS (1)
  - ECCHYMOSIS [None]
